FAERS Safety Report 5820415-4 (Version None)
Quarter: 2008Q3

REPORT INFORMATION
  Report Type: 
  Country: None (occurrence: None)
  Receive Date: 20080724
  Receipt Date: 20070706
  Transmission Date: 20090109
  Serious: No
  Sender: FDA-Public Use
  Company Number: A0663317A

PATIENT
  Sex: Female

DRUGS (1)
  1. AVANDIA [Suspect]
     Route: 048
     Dates: start: 20030101

REACTIONS (4)
  - ABDOMINAL PAIN UPPER [None]
  - DIARRHOEA [None]
  - DISCOMFORT [None]
  - SWELLING [None]
